FAERS Safety Report 12933351 (Version 2)
Quarter: 2016Q4

REPORT INFORMATION
  Report Type: Spontaneous
  Country: AT (occurrence: AT)
  Receive Date: 20161111
  Receipt Date: 20161121
  Transmission Date: 20170207
  Serious: Yes (Other)
  Sender: FDA-Public Use
  Company Number: AT-SA-2016SA203034

PATIENT
  Sex: Male
  Weight: 4.52 kg

DRUGS (1)
  1. MYOZYME [Suspect]
     Active Substance: ALGLUCOSIDASE ALFA

REACTIONS (2)
  - Truncus arteriosus persistent [Unknown]
  - Exposure via father [Unknown]

NARRATIVE: CASE EVENT DATE: 2016
